FAERS Safety Report 12698681 (Version 1)
Quarter: 2016Q3

REPORT INFORMATION
  Report Type: Spontaneous
  Country: US (occurrence: US)
  Receive Date: 20160830
  Receipt Date: 20160830
  Transmission Date: 20161109
  Serious: No
  Sender: FDA-Public Use
  Company Number: US-PERRIGO-16US013623

PATIENT
  Sex: Female
  Weight: 47.62 kg

DRUGS (2)
  1. EVAMIST [Suspect]
     Active Substance: ESTRADIOL
     Indication: OSTEOPOROSIS
     Dosage: 1.53 TO 3.06 MG, QD
     Route: 062
     Dates: start: 2014, end: 20160222
  2. EVAMIST [Suspect]
     Active Substance: ESTRADIOL
     Dosage: 1.53 TO 3.06 MG, QD
     Route: 062
     Dates: start: 20160223

REACTIONS (2)
  - Off label use [Not Recovered/Not Resolved]
  - No adverse event [Not Recovered/Not Resolved]

NARRATIVE: CASE EVENT DATE: 2014
